FAERS Safety Report 5257004-9 (Version None)
Quarter: 2007Q1

REPORT INFORMATION
  Report Type: 
  Country: None (occurrence: None)
  Receive Date: 20070305
  Receipt Date: 20070305
  Transmission Date: 20070707
  Serious: Yes (Other)
  Sender: FDA-Public Use
  Company Number: None

PATIENT
  Age: 60 Year
  Sex: Male
  Weight: 79.3795 kg

DRUGS (3)
  1. COREG [Suspect]
     Indication: HEART RATE INCREASED
     Dosage: 12.5 MG TWICE A DAY PO
     Route: 048
     Dates: start: 20070201, end: 20070227
  2. COREG [Suspect]
     Indication: HYPERTENSION
     Dosage: 12.5 MG TWICE A DAY PO
     Route: 048
     Dates: start: 20070201, end: 20070227
  3. TOPROL-XL [Concomitant]

REACTIONS (6)
  - DRY EYE [None]
  - EYE PRURITUS [None]
  - INSOMNIA [None]
  - TENSION HEADACHE [None]
  - VISION BLURRED [None]
  - VISUAL ACUITY REDUCED [None]
